FAERS Safety Report 9726848 (Version 2)
Quarter: 2013Q4

REPORT INFORMATION
  Report Type: Report from Study
  Country: CA (occurrence: CA)
  Receive Date: 20131203
  Receipt Date: 20131203
  Transmission Date: 20140711
  Serious: Yes (Other)
  Sender: FDA-Public Use
  Company Number: CA-UCBSA-103930

PATIENT
  Age: 54 Year
  Sex: Female
  Weight: 65.8 kg

DRUGS (5)
  1. CIMZIA [Suspect]
     Indication: RHEUMATOID ARTHRITIS
     Route: 058
     Dates: start: 20131101, end: 20131119
  2. ATORVASTATIN [Concomitant]
     Indication: BLOOD CHOLESTEROL
     Route: 048
  3. DITROPAN XL [Concomitant]
     Indication: HYPERTONIC BLADDER
     Route: 048
  4. METFORMIN [Concomitant]
     Indication: DIABETES MELLITUS
     Route: 048
  5. NOVOMIX [Concomitant]
     Indication: DIABETES MELLITUS
     Dosage: 70 UNIT AS DIRECTED
     Route: 058

REACTIONS (5)
  - Swelling face [Unknown]
  - Urticaria [Unknown]
  - Rheumatoid arthritis [Not Recovered/Not Resolved]
  - Injection site erythema [Not Recovered/Not Resolved]
  - Injection site urticaria [Not Recovered/Not Resolved]
